FAERS Safety Report 13959502 (Version 7)
Quarter: 2019Q1

REPORT INFORMATION
  Report Type: Spontaneous
  Country: US (occurrence: US)
  Receive Date: 20170911
  Receipt Date: 20190305
  Transmission Date: 20190417
  Serious: Yes (Hospitalization, Other)
  Sender: FDA-Public Use
  Company Number: US-DSJP-DSU-2017-135958

PATIENT

DRUGS (3)
  1. BENICAR HCT [Suspect]
     Active Substance: HYDROCHLOROTHIAZIDE\OLMESARTAN MEDOXOMIL
     Indication: PRODUCT USED FOR UNKNOWN INDICATION
     Dosage: 40/12.5MG
     Route: 048
     Dates: start: 20110908
  2. BENICAR [Suspect]
     Active Substance: OLMESARTAN MEDOXOMIL
     Indication: PRODUCT USED FOR UNKNOWN INDICATION
     Dosage: UNK
     Route: 065
     Dates: start: 20110808, end: 20140409
  3. BENICAR [Suspect]
     Active Substance: OLMESARTAN MEDOXOMIL
     Dosage: UNK
     Route: 065
     Dates: start: 20121017, end: 20160831

REACTIONS (6)
  - Gastrooesophageal reflux disease [Recovering/Resolving]
  - Renal disorder [Unknown]
  - Sprue-like enteropathy [Recovering/Resolving]
  - Gastric ulcer [Unknown]
  - Liver function test abnormal [Unknown]
  - Diverticulum [Unknown]

NARRATIVE: CASE EVENT DATE: 2013
